FAERS Safety Report 10454293 (Version 2)
Quarter: 2014Q3

REPORT INFORMATION
  Report Type: Spontaneous
  Country: GB (occurrence: GB)
  Receive Date: 20140915
  Receipt Date: 20140925
  Transmission Date: 20150326
  Serious: Yes (Other)
  Sender: FDA-Public Use
  Company Number: PHFR2014GB005976

PATIENT
  Sex: Male

DRUGS (2)
  1. CLOZARIL [Suspect]
     Active Substance: CLOZAPINE
     Indication: SCHIZOPHRENIA
     Dosage: UKN
     Route: 048
     Dates: start: 20130710
  2. CLOZARIL [Suspect]
     Active Substance: CLOZAPINE
     Dosage: 3000 MG
     Route: 048

REACTIONS (3)
  - Dyskinesia [Unknown]
  - Substance abuse [Unknown]
  - Overdose [Unknown]
